FAERS Safety Report 10530346 (Version 13)
Quarter: 2015Q4

REPORT INFORMATION
  Report Type: Report from Study
  Country: DE (occurrence: DE)
  Receive Date: 20141021
  Receipt Date: 20151116
  Transmission Date: 20160304
  Serious: Yes (Death, Hospitalization)
  Sender: FDA-Public Use
  Company Number: DE-BAYER-2014-141440

PATIENT
  Age: 69 Year
  Sex: Female
  Weight: 65 kg

DRUGS (18)
  1. CERNEVIT [VITAMINS NOS] [Concomitant]
     Indication: WEIGHT DECREASED
     Dosage: UNK UNK, PRN
     Route: 051
     Dates: start: 20141103, end: 20141207
  2. OMEPRAZOL [Concomitant]
     Active Substance: OMEPRAZOLE
     Indication: REFLUX GASTRITIS
     Dosage: 20 MG, DAILY
     Route: 048
     Dates: start: 20140620
  3. DIPIDOLOR [Concomitant]
     Active Substance: PIRITRAMIDE
     Indication: ABDOMINAL PAIN
     Dosage: 3.75 MG, PRN
     Route: 051
     Dates: start: 20141103, end: 20141207
  4. REGORAFENIB [Suspect]
     Active Substance: REGORAFENIB
     Indication: HEPATOCELLULAR CARCINOMA
     Dosage: 120 MG, QD
     Route: 048
     Dates: start: 20141010, end: 20141030
  5. MCP [Concomitant]
     Active Substance: METOCLOPRAMIDE HYDROCHLORIDE
     Indication: DECREASED APPETITE
     Dosage: 30 MG, DAILY
     Route: 048
     Dates: start: 20140627
  6. FLUCONAZOL [Concomitant]
     Active Substance: FLUCONAZOLE
     Indication: ORAL PAIN
     Dosage: 150 MG, QD
     Route: 048
     Dates: start: 20140903, end: 20140911
  7. DICLOFENAC [Concomitant]
     Active Substance: DICLOFENAC
     Indication: OSTEOARTHRITIS
     Dosage: 75 MG, DAILY
     Route: 048
     Dates: start: 20140627
  8. TAVOR [LORAZEPAM] [Concomitant]
     Active Substance: LORAZEPAM
     Indication: RESTLESS LEGS SYNDROME
     Dosage: 0.5 MG, PRN
     Route: 048
  9. ADDEL N [Concomitant]
     Active Substance: UNSPECIFIED INGREDIENT
     Indication: WEIGHT DECREASED
     Dosage: 10 ML, PRN
     Route: 051
     Dates: start: 20141103, end: 20141207
  10. POSTERISAN [ESCHERICHIA COLI] [Concomitant]
     Indication: HAEMORRHOIDS
     Dosage: UNK UNK, PRN
     Route: 003
     Dates: start: 20140718, end: 20141207
  11. RAMIPRIL. [Concomitant]
     Active Substance: RAMIPRIL
     Indication: HYPERTENSION
     Dosage: 5 MG, QD
     Route: 048
     Dates: end: 20141207
  12. L-THYROX [Concomitant]
     Active Substance: LEVOTHYROXINE SODIUM
     Indication: HYPOTHYROIDISM
     Dosage: 150 ?G, PRN
     Route: 048
     Dates: start: 20140801, end: 20141207
  13. EUTHYROX [Concomitant]
     Active Substance: LEVOTHYROXINE SODIUM
     Indication: HYPOTHYROIDISM
     Dosage: 50 ?G, DAILY
     Route: 048
     Dates: start: 20140801
  14. REGORAFENIB [Suspect]
     Active Substance: REGORAFENIB
     Indication: HEPATOCELLULAR CARCINOMA
     Dosage: 160 MG, QD
     Route: 048
     Dates: start: 20140620, end: 20140911
  15. REGORAFENIB [Suspect]
     Active Substance: REGORAFENIB
     Indication: HEPATOCELLULAR CARCINOMA
     Dosage: 120 MG, QD
     Route: 048
     Dates: start: 20140912, end: 20140917
  16. NITROFURANTOIN. [Concomitant]
     Active Substance: NITROFURANTOIN
     Indication: URINARY TRACT INFECTION
     Dosage: DAILY DOSE 100 MG
     Route: 048
     Dates: start: 20140801, end: 20140808
  17. RESTEX [Concomitant]
     Active Substance: BENSERAZIDE
     Indication: RESTLESS LEGS SYNDROME
     Dosage: 100/25 MG, DAILY
     Route: 048
  18. SMOFKABIVEN [Concomitant]
     Active Substance: UNSPECIFIED INGREDIENT
     Indication: WEIGHT DECREASED
     Dosage: UNK UNK, PRN
     Route: 051
     Dates: start: 20141103, end: 20141207

REACTIONS (4)
  - Dysphagia [Recovering/Resolving]
  - Epistaxis [Fatal]
  - General physical health deterioration [Fatal]
  - Stomatitis [Not Recovered/Not Resolved]

NARRATIVE: CASE EVENT DATE: 20140917
